FAERS Safety Report 4965656-3 (Version None)
Quarter: 2006Q1

REPORT INFORMATION
  Report Type: 
  Country: None (occurrence: None)
  Receive Date: 20060201
  Receipt Date: 20051117
  Transmission Date: 20060701
  Serious: No
  Sender: FDA-Public Use
  Company Number: 2005PV005157

PATIENT
  Age: 67 Year
  Sex: Female
  Weight: 77.1115 kg

DRUGS (4)
  1. BYETTA [Suspect]
     Indication: DIABETES MELLITUS NON-INSULIN-DEPENDENT
     Dosage: 5 MCG; QPM; SC;  5 MCG; BID; SC
     Route: 058
     Dates: start: 20051110, end: 20051112
  2. BYETTA [Suspect]
     Indication: DIABETES MELLITUS NON-INSULIN-DEPENDENT
     Dosage: 5 MCG; QPM; SC;  5 MCG; BID; SC
     Route: 058
     Dates: start: 20051113
  3. HUMALOG [Concomitant]
  4. GLUCOPHAGE XR [Concomitant]

REACTIONS (5)
  - BLOOD GLUCOSE DECREASED [None]
  - DIZZINESS [None]
  - FEELING ABNORMAL [None]
  - MALAISE [None]
  - NAUSEA [None]
